FAERS Safety Report 25775036 (Version 1)
Quarter: 2025Q3

REPORT INFORMATION
  Report Type: Spontaneous
  Country: CA (occurrence: None)
  Receive Date: 20250909
  Receipt Date: 20250909
  Transmission Date: 20251021
  Serious: Yes (Hospitalization, Other)
  Sender: Harrow Health
  Company Number: NVSC2025CA134150

PATIENT
  Age: 52 Year
  Sex: Female

DRUGS (65)
  1. MOXIFLOXACIN HYDROCHLORIDE [Suspect]
     Active Substance: MOXIFLOXACIN HYDROCHLORIDE
     Indication: Product used for unknown indication
     Route: 065
  2. MOXIFLOXACIN HYDROCHLORIDE [Suspect]
     Active Substance: MOXIFLOXACIN HYDROCHLORIDE
     Route: 047
  3. MONTELUKAST [Suspect]
     Active Substance: MONTELUKAST
     Indication: Product used for unknown indication
  4. QUETIAPINE [Suspect]
     Active Substance: QUETIAPINE
     Indication: Product used for unknown indication
  5. AZITHROMYCIN [Suspect]
     Active Substance: AZITHROMYCIN
     Indication: Product used for unknown indication
  6. OLANZAPINE [Suspect]
     Active Substance: OLANZAPINE
     Indication: Psychotic disorder
  7. OLANZAPINE [Suspect]
     Active Substance: OLANZAPINE
     Indication: Musculoskeletal stiffness
     Route: 048
  8. OLANZAPINE [Suspect]
     Active Substance: OLANZAPINE
     Indication: Product used for unknown indication
     Route: 048
  9. OLANZAPINE [Suspect]
     Active Substance: OLANZAPINE
     Route: 065
  10. RISPERIDONE [Suspect]
     Active Substance: RISPERIDONE
     Indication: Psychotic disorder
     Route: 048
  11. RISPERIDONE [Suspect]
     Active Substance: RISPERIDONE
     Route: 048
  12. TEGRETOL [Suspect]
     Active Substance: CARBAMAZEPINE
     Indication: Hypomania
  13. ACETAMINOPHEN [Suspect]
     Active Substance: ACETAMINOPHEN
     Indication: Pain in extremity
     Route: 048
  14. ACLIDINIUM BROMIDE\FORMOTEROL FUMARATE [Suspect]
     Active Substance: ACLIDINIUM BROMIDE\FORMOTEROL FUMARATE
     Indication: Product used for unknown indication
  15. APTIVUS [Suspect]
     Active Substance: TIPRANAVIR
     Indication: HIV infection
     Route: 048
  16. ATROVENT [Suspect]
     Active Substance: IPRATROPIUM BROMIDE
     Indication: Product used for unknown indication
  17. BREO ELLIPTA [Suspect]
     Active Substance: FLUTICASONE FUROATE\VILANTEROL TRIFENATATE
     Indication: Product used for unknown indication
  18. BUDESONIDE [Suspect]
     Active Substance: BUDESONIDE
     Indication: Product used for unknown indication
  19. BUDESONIDE\FORMOTEROL FUMARATE [Suspect]
     Active Substance: BUDESONIDE\FORMOTEROL FUMARATE
     Indication: Product used for unknown indication
  20. CLONAZEPAM [Suspect]
     Active Substance: CLONAZEPAM
     Indication: Hypomania
     Route: 048
  21. CLONAZEPAM [Suspect]
     Active Substance: CLONAZEPAM
     Route: 048
  22. CLONAZEPAM [Suspect]
     Active Substance: CLONAZEPAM
  23. CLONAZEPAM [Suspect]
     Active Substance: CLONAZEPAM
  24. DIAZEPAM [Suspect]
     Active Substance: DIAZEPAM
     Indication: Depression
  25. DIAZEPAM [Suspect]
     Active Substance: DIAZEPAM
  26. DIAZEPAM [Suspect]
     Active Substance: DIAZEPAM
     Route: 048
  27. NASONEX [Suspect]
     Active Substance: MOMETASONE FUROATE
     Indication: Product used for unknown indication
  28. NUCALA [Suspect]
     Active Substance: MEPOLIZUMAB
     Indication: Product used for unknown indication
  29. OLODATEROL HYDROCHLORIDE\TIOTROPIUM BROMIDE MONOHYDRATE [Suspect]
     Active Substance: OLODATEROL HYDROCHLORIDE\TIOTROPIUM BROMIDE MONOHYDRATE
     Indication: Product used for unknown indication
  30. OMNARIS [Suspect]
     Active Substance: CICLESONIDE
     Indication: Product used for unknown indication
  31. PREDNISONE [Suspect]
     Active Substance: PREDNISONE
     Indication: Product used for unknown indication
  32. PROCYCLIDINE HYDROCHLORIDE [Suspect]
     Active Substance: PROCYCLIDINE HYDROCHLORIDE
     Indication: Prophylaxis
     Route: 048
  33. PROCYCLIDINE HYDROCHLORIDE [Suspect]
     Active Substance: PROCYCLIDINE HYDROCHLORIDE
     Indication: Musculoskeletal stiffness
  34. ALBUTEROL [Suspect]
     Active Substance: ALBUTEROL
     Indication: Product used for unknown indication
  35. SPIRIVA [Suspect]
     Active Substance: TIOTROPIUM BROMIDE MONOHYDRATE
     Indication: Product used for unknown indication
  36. TIOTROPIUM BROMIDE MONOHYDRATE [Suspect]
     Active Substance: TIOTROPIUM BROMIDE MONOHYDRATE
     Indication: Product used for unknown indication
  37. TIPRANAVIR [Suspect]
     Active Substance: TIPRANAVIR
     Indication: Product used for unknown indication
     Route: 048
  38. TRAZODONE [Suspect]
     Active Substance: TRAZODONE HYDROCHLORIDE
     Indication: Depression
     Route: 048
  39. UMECLIDINIUM BROMIDE\VILANTEROL TRIFENATATE [Suspect]
     Active Substance: UMECLIDINIUM BROMIDE\VILANTEROL TRIFENATATE
     Indication: Product used for unknown indication
     Route: 048
  40. DIVALPROEX SODIUM [Suspect]
     Active Substance: DIVALPROEX SODIUM
     Indication: Product used for unknown indication
     Route: 048
  41. DIVALPROEX SODIUM [Suspect]
     Active Substance: DIVALPROEX SODIUM
  42. DIVALPROEX SODIUM [Suspect]
     Active Substance: DIVALPROEX SODIUM
  43. DIVALPROEX SODIUM [Suspect]
     Active Substance: DIVALPROEX SODIUM
     Route: 048
  44. DIVALPROEX SODIUM [Suspect]
     Active Substance: DIVALPROEX SODIUM
  45. DIVALPROEX SODIUM [Suspect]
     Active Substance: DIVALPROEX SODIUM
     Route: 048
  46. ZENHALE [Suspect]
     Active Substance: FORMOTEROL FUMARATE\MOMETASONE FUROATE
     Indication: Product used for unknown indication
  47. ZYPREXA [Suspect]
     Active Substance: OLANZAPINE
     Indication: Psychotic disorder
     Route: 048
  48. ZYPREXA [Suspect]
     Active Substance: OLANZAPINE
     Route: 048
  49. LAMIVUDINE [Concomitant]
     Active Substance: LAMIVUDINE
  50. ABACAVIR SULFATE [Concomitant]
     Active Substance: ABACAVIR SULFATE
  51. ANTI NAUSEANT [Concomitant]
  52. ATOVAQUONE\PROGUANIL [Concomitant]
     Active Substance: ATOVAQUONE\PROGUANIL
  53. BENADRYL [Concomitant]
     Active Substance: DIPHENHYDRAMINE HYDROCHLORIDE
  54. BISACODYL [Concomitant]
     Active Substance: BISACODYL
  55. CALCIUM CARBONATE [Concomitant]
     Active Substance: CALCIUM CARBONATE
  56. CHLORAL HYDRATE [Concomitant]
     Active Substance: CHLORAL HYDRATE
  57. DIPHENHYDRAMINE [Concomitant]
     Active Substance: DIPHENHYDRAMINE
  58. IMODIUM [Concomitant]
     Active Substance: LOPERAMIDE HYDROCHLORIDE
  59. KALETRA [Concomitant]
     Active Substance: LOPINAVIR\RITONAVIR
  60. LACTULOSE [Concomitant]
     Active Substance: LACTULOSE
  61. LITHIUM [Concomitant]
     Active Substance: LITHIUM
  62. NYSTATIN [Concomitant]
     Active Substance: NYSTATIN
  63. PHENYLEPHRINE [Concomitant]
     Active Substance: PHENYLEPHRINE
  64. SERTRALINE HYDROCHLORIDE [Concomitant]
     Active Substance: SERTRALINE HYDROCHLORIDE
  65. ENFUVIRTIDE [Concomitant]
     Active Substance: ENFUVIRTIDE

REACTIONS (26)
  - Wheezing [Recovered/Resolved]
  - Asthma-chronic obstructive pulmonary disease overlap syndrome [Recovered/Resolved]
  - Blood bilirubin increased [Recovered/Resolved]
  - Bronchiectasis [Recovered/Resolved]
  - Cardiac murmur [Recovered/Resolved]
  - Cholelithiasis [Recovered/Resolved]
  - Chronic obstructive pulmonary disease [Recovered/Resolved]
  - Condition aggravated [Recovered/Resolved]
  - Gastrooesophageal reflux disease [Recovered/Resolved]
  - Hepatic enzyme increased [Recovered/Resolved]
  - Hepatotoxicity [Recovered/Resolved]
  - Hypomania [Recovered/Resolved]
  - Jaundice cholestatic [Recovered/Resolved]
  - Lung neoplasm malignant [Recovered/Resolved]
  - Nasal polyps [Recovered/Resolved]
  - Nausea [Recovered/Resolved]
  - Oedema peripheral [Recovered/Resolved]
  - Off label use [Recovered/Resolved]
  - Pneumonia [Recovered/Resolved]
  - Product use in unapproved indication [Recovered/Resolved]
  - Psychotic disorder [Recovered/Resolved]
  - Rhinitis allergic [Recovered/Resolved]
  - Sarcoidosis [Recovered/Resolved]
  - Schizophrenia [Recovered/Resolved]
  - Total lung capacity increased [Recovered/Resolved]
  - Vomiting [Recovered/Resolved]
